FAERS Safety Report 4505793-0 (Version None)
Quarter: 2004Q4

REPORT INFORMATION
  Report Type: 
  Country: None (occurrence: None)
  Receive Date: 20041025
  Receipt Date: 20040415
  Transmission Date: 20050328
  Serious: Yes (Hospitalization)
  Sender: FDA-Public Use
  Company Number: US-JNJFOC-20031202490

PATIENT
  Age: 61 Year
  Sex: Male
  Weight: 72.5755 kg

DRUGS (22)
  1. REMICADE [Suspect]
     Indication: CROHN'S DISEASE
     Dosage: INTRAVENOUS; SEE IMAGE
     Route: 042
     Dates: start: 20030205
  2. REMICADE [Suspect]
     Indication: CROHN'S DISEASE
     Dosage: INTRAVENOUS; SEE IMAGE
     Route: 042
     Dates: start: 20030306
  3. REMICADE [Suspect]
     Indication: CROHN'S DISEASE
     Dosage: INTRAVENOUS; SEE IMAGE
     Route: 042
     Dates: start: 20030401
  4. REMICADE [Suspect]
     Indication: CROHN'S DISEASE
     Dosage: INTRAVENOUS; SEE IMAGE
     Route: 042
     Dates: start: 20030430
  5. REMICADE [Suspect]
     Indication: CROHN'S DISEASE
     Dosage: INTRAVENOUS; SEE IMAGE
     Route: 042
     Dates: start: 20030501
  6. REMICADE [Suspect]
     Indication: CROHN'S DISEASE
     Dosage: INTRAVENOUS; SEE IMAGE
     Route: 042
     Dates: start: 20030530
  7. REMICADE [Suspect]
     Indication: CROHN'S DISEASE
     Dosage: INTRAVENOUS; SEE IMAGE
     Route: 042
     Dates: start: 20030709
  8. REMICADE [Suspect]
     Indication: CROHN'S DISEASE
     Dosage: INTRAVENOUS; SEE IMAGE
     Route: 042
     Dates: start: 20030808
  9. REMICADE [Suspect]
     Indication: CROHN'S DISEASE
     Dosage: INTRAVENOUS; SEE IMAGE
     Route: 042
     Dates: start: 20030922
  10. REMICADE [Suspect]
     Indication: CROHN'S DISEASE
     Dosage: INTRAVENOUS; SEE IMAGE
     Route: 042
     Dates: start: 20031031
  11. FOLIC ACID [Concomitant]
  12. PENTASA [Concomitant]
  13. CIPRO [Concomitant]
  14. PREDNISONE [Concomitant]
  15. METHOTREXATE [Concomitant]
  16. ASPIRIN [Concomitant]
  17. QUESTRAN [Concomitant]
  18. HYTRIN [Concomitant]
  19. TAGAMET [Concomitant]
  20. MULTIVITAMIN (MULTIVITAMINS) [Concomitant]
  21. ESOMEPRAZOLE (ESOMEPRAZOLE) [Concomitant]
  22. RANITIDINE [Concomitant]

REACTIONS (1)
  - CROHN'S DISEASE [None]
